FAERS Safety Report 5827498-6 (Version None)
Quarter: 2008Q3

REPORT INFORMATION
  Report Type: 
  Country: None (occurrence: None)
  Receive Date: 20080730
  Receipt Date: 20080725
  Transmission Date: 20090109
  Serious: Yes (Other)
  Sender: FDA-Public Use
  Company Number: US-ASTRAZENECA-2008UW14533

PATIENT
  Age: 80 Year
  Sex: Male
  Weight: 81.6 kg

DRUGS (2)
  1. ATACAND [Suspect]
     Indication: HYPERTENSION
     Route: 048
     Dates: start: 20080701, end: 20080701
  2. PREDNISONE [Concomitant]
     Dosage: PRN

REACTIONS (4)
  - DEAFNESS TRANSITORY [None]
  - DYSPHONIA [None]
  - LIP SWELLING [None]
  - SWELLING FACE [None]
